FAERS Safety Report 4635417-3 (Version None)
Quarter: 2005Q2

REPORT INFORMATION
  Report Type: 
  Country: None (occurrence: None)
  Receive Date: 20050413
  Receipt Date: 20050329
  Transmission Date: 20051028
  Serious: No
  Sender: FDA-Public Use
  Company Number: 2005UW04870

PATIENT
  Age: 76 Year
  Sex: Male
  Weight: 80.7 kg

DRUGS (14)
  1. CRESTOR [Suspect]
     Indication: BLOOD CHOLESTEROL INCREASED
     Dosage: 10 MG QD PO
     Route: 048
  2. ZETIA [Concomitant]
  3. ISOSORBIDE [Concomitant]
  4. ACCUPRIL [Concomitant]
  5. WARFARIN SODIUM [Concomitant]
  6. AVANDIA [Concomitant]
  7. COREG [Concomitant]
  8. SYNTHROID [Concomitant]
  9. LASIX [Concomitant]
  10. REGLAN /USA/ [Concomitant]
  11. ZAROXOLYN [Concomitant]
  12. ALLOPURINOL [Concomitant]
  13. GLIPIZIDE [Concomitant]
  14. PROTONIX [Concomitant]

REACTIONS (3)
  - DEPRESSION SUICIDAL [None]
  - DIALYSIS [None]
  - RENAL DISORDER [None]
